FAERS Safety Report 5806515-3 (Version None)
Quarter: 2008Q3

REPORT INFORMATION
  Report Type: 
  Country: None (occurrence: None)
  Receive Date: 20080710
  Receipt Date: 20080630
  Transmission Date: 20090109
  Serious: Yes (Hospitalization, Other)
  Sender: FDA-Public Use
  Company Number: US-ABBOTT-08P-163-0446383-00

PATIENT
  Sex: Female

DRUGS (6)
  1. HUMIRA [Suspect]
     Indication: RHEUMATOID ARTHRITIS
     Dates: start: 20080309
  2. METHOTREXATE [Concomitant]
     Indication: DRUG USE FOR UNKNOWN INDICATION
  3. PREDNISOLONE [Concomitant]
     Indication: DRUG USE FOR UNKNOWN INDICATION
  4. PREDNISOLONE [Concomitant]
  5. FOLIC ACID [Concomitant]
     Indication: DRUG USE FOR UNKNOWN INDICATION
  6. IV STEROIDS [Concomitant]
     Indication: DRUG USE FOR UNKNOWN INDICATION
     Dates: start: 20080407

REACTIONS (30)
  - ABDOMINAL PAIN [None]
  - ANAEMIA [None]
  - ATELECTASIS [None]
  - BLOOD URINE PRESENT [None]
  - BREATH SOUNDS ABNORMAL [None]
  - COAGULOPATHY [None]
  - DECREASED APPETITE [None]
  - DEEP VEIN THROMBOSIS [None]
  - DYSPNOEA [None]
  - ECCHYMOSIS [None]
  - EOSINOPHIL COUNT INCREASED [None]
  - ERYTHEMA [None]
  - FLANK PAIN [None]
  - GAIT DISTURBANCE [None]
  - HAEMOTHORAX [None]
  - HEPATIC STEATOSIS [None]
  - HYPOKALAEMIA [None]
  - HYPOPHOSPHATAEMIA [None]
  - JUGULAR VEIN DISTENSION [None]
  - LETHARGY [None]
  - LUNG CONSOLIDATION [None]
  - MUSCULOSKELETAL CHEST PAIN [None]
  - OEDEMA PERIPHERAL [None]
  - ORTHOSTATIC HYPOTENSION [None]
  - PAIN IN EXTREMITY [None]
  - PLEURAL EFFUSION [None]
  - RENAL CYST [None]
  - TACHYCARDIA [None]
  - TENDERNESS [None]
  - URINARY TRACT INFECTION [None]
